FAERS Safety Report 8231220-6 (Version None)
Quarter: 2012Q1

REPORT INFORMATION
  Report Type: 
  Country: None (occurrence: None)
  Receive Date: 20120323
  Receipt Date: 20120323
  Transmission Date: 20120608
  Serious: No
  Sender: FDA-Public Use
  Company Number: None

PATIENT
  Age: 30 Year
  Sex: Male
  Weight: 106.59 kg

DRUGS (1)
  1. LARIAM [Suspect]
     Dates: start: 19930103, end: 19960106

REACTIONS (3)
  - SLEEP DISORDER [None]
  - FEELING ABNORMAL [None]
  - PANIC ATTACK [None]
